FAERS Safety Report 12671155 (Version 1)
Quarter: 2016Q3

REPORT INFORMATION
  Report Type: Spontaneous
  Country: US (occurrence: US)
  Receive Date: 20160822
  Receipt Date: 20160822
  Transmission Date: 20161109
  Serious: No
  Sender: FDA-Public Use
  Company Number: US-BAYER-2016-162860

PATIENT
  Age: 57 Year
  Sex: Female
  Weight: 80.73 kg

DRUGS (4)
  1. METHADONE [Concomitant]
     Active Substance: METHADONE HYDROCHLORIDE
  2. AMITIZA [Concomitant]
     Active Substance: LUBIPROSTONE
  3. HYDROCODONE [Concomitant]
     Active Substance: HYDROCODONE
  4. MIRALAX [Suspect]
     Active Substance: POLYETHYLENE GLYCOL 3350
     Indication: CONSTIPATION
     Dosage: UNK
     Route: 048
     Dates: end: 20160817

REACTIONS (3)
  - Fatigue [Not Recovered/Not Resolved]
  - Nausea [None]
  - Product use issue [None]
